FAERS Safety Report 20027185 (Version 4)
Quarter: 2023Q2

REPORT INFORMATION
  Report Type: Spontaneous
  Country: CA (occurrence: CA)
  Receive Date: 20211103
  Receipt Date: 20230519
  Transmission Date: 20230722
  Serious: Yes (Hospitalization, Other)
  Sender: FDA-Public Use
  Company Number: CA-009507513-2009CAN008119

PATIENT
  Age: 50 Year
  Sex: Female

DRUGS (82)
  1. SINGULAIR [Suspect]
     Active Substance: MONTELUKAST SODIUM
     Indication: Complex regional pain syndrome
     Dosage: DOSAGE FORM: NOT SPECIFIED
     Route: 065
  2. SINGULAIR [Suspect]
     Active Substance: MONTELUKAST SODIUM
     Dosage: UNK
     Route: 065
  3. AMITRIPTYLINE HYDROCHLORIDE [Suspect]
     Active Substance: AMITRIPTYLINE HYDROCHLORIDE
     Indication: Complex regional pain syndrome
     Dosage: UNK
     Route: 065
  4. AMITRIPTYLINE HYDROCHLORIDE [Suspect]
     Active Substance: AMITRIPTYLINE HYDROCHLORIDE
     Dosage: UNK
     Route: 065
  5. AMLODIPINE BESYLATE [Suspect]
     Active Substance: AMLODIPINE BESYLATE
     Indication: Complex regional pain syndrome
     Dosage: UNK
     Route: 065
  6. AMLODIPINE BESYLATE [Suspect]
     Active Substance: AMLODIPINE BESYLATE
     Dosage: UNK
     Route: 065
  7. KINERET [Suspect]
     Active Substance: ANAKINRA
     Indication: Complex regional pain syndrome
     Dosage: UNK,(DOSAGE FORM SOLUTION SUBCUTANEOUS),(PRODUCT AS KINERET 100MG PER SYRINGE SINGLE-USE,PRESERVATIV
     Route: 065
  8. KINERET [Suspect]
     Active Substance: ANAKINRA
     Dosage: UNK
     Route: 065
  9. OTEZLA [Suspect]
     Active Substance: APREMILAST
     Indication: Complex regional pain syndrome
     Dosage: UNK
     Route: 065
  10. BUMETANIDE [Suspect]
     Active Substance: BUMETANIDE
     Indication: Complex regional pain syndrome
     Dosage: UNK
     Route: 065
  11. CAPSAICIN [Suspect]
     Active Substance: CAPSAICIN
     Indication: Complex regional pain syndrome
     Dosage: UNK,(DOSAGE FORM:NOT SPECIFIED)
     Route: 061
  12. CAPSAICIN [Suspect]
     Active Substance: CAPSAICIN
     Dosage: UNK
     Route: 065
  13. CIMETIDINE [Suspect]
     Active Substance: CIMETIDINE
     Indication: Complex regional pain syndrome
     Dosage: UNK,DOSAGE FORM NOT SPECIFIED
     Route: 065
  14. CIMETIDINE [Suspect]
     Active Substance: CIMETIDINE
     Dosage: UNK,DOSAGE FORM NOT SPECIFIED
     Route: 065
  15. CLONIDINE [Suspect]
     Active Substance: CLONIDINE
     Indication: Complex regional pain syndrome
     Dosage: UNK,DOSAGE FORM NOT SPECIFIED
     Route: 065
  16. CLONIDINE [Suspect]
     Active Substance: CLONIDINE
     Dosage: UNK
     Route: 065
  17. DILTIAZEM HYDROCHLORIDE [Suspect]
     Active Substance: DILTIAZEM HYDROCHLORIDE
     Indication: Complex regional pain syndrome
     Dosage: UNK,DOSAGE FORM NOT SPECIFIED
     Route: 065
  18. DILTIAZEM HYDROCHLORIDE [Suspect]
     Active Substance: DILTIAZEM HYDROCHLORIDE
     Dosage: UNK
     Route: 065
  19. ERELZI [Suspect]
     Active Substance: ETANERCEPT-SZZS
     Indication: Complex regional pain syndrome
     Dosage: UNK,DOSAGE FORM NOT SPECIFIED
     Route: 065
  20. ERELZI [Suspect]
     Active Substance: ETANERCEPT-SZZS
     Dosage: UNK,DOSAGE FORM NOT SPECIFIED
     Route: 065
  21. HYDROXYCHLOROQUINE SULFATE [Suspect]
     Active Substance: HYDROXYCHLOROQUINE SULFATE
     Indication: Complex regional pain syndrome
     Dosage: UNK
     Route: 065
  22. HYDROXYCHLOROQUINE SULFATE [Suspect]
     Active Substance: HYDROXYCHLOROQUINE SULFATE
     Dosage: UNK
     Route: 065
  23. IBUDILAST [Suspect]
     Active Substance: IBUDILAST
     Indication: Complex regional pain syndrome
     Dosage: UNK
     Route: 065
  24. IBUDILAST [Suspect]
     Active Substance: IBUDILAST
     Dosage: UNK
     Route: 065
  25. KETAMINE HYDROCHLORIDE [Suspect]
     Active Substance: KETAMINE HYDROCHLORIDE
     Indication: Complex regional pain syndrome
     Dosage: UNK
     Route: 061
  26. KETAMINE HYDROCHLORIDE [Suspect]
     Active Substance: KETAMINE HYDROCHLORIDE
     Dosage: UNK,DOSAGE FORM NOT SPECIFIED
     Route: 048
  27. KETAMINE HYDROCHLORIDE [Suspect]
     Active Substance: KETAMINE HYDROCHLORIDE
     Dosage: UNK,DOSAGE FORM NOT SPECIFIED
     Route: 042
  28. KETAMINE HYDROCHLORIDE [Suspect]
     Active Substance: KETAMINE HYDROCHLORIDE
     Dosage: UNK,DOSAGE FORM NOT SPECIFIED
     Route: 048
  29. LIDOCAINE HYDROCHLORIDE [Suspect]
     Active Substance: LIDOCAINE HYDROCHLORIDE
     Indication: Complex regional pain syndrome
     Dosage: UNK
     Route: 061
  30. LIDOCAINE HYDROCHLORIDE [Suspect]
     Active Substance: LIDOCAINE HYDROCHLORIDE
     Dosage: UNK,INTRAVENOUS(NOT OTHERWISE SPECIFIED)
     Route: 042
  31. LIDOCAINE HYDROCHLORIDE [Suspect]
     Active Substance: LIDOCAINE HYDROCHLORIDE
     Dosage: UNK,(DOSAGE FORM LIQUID PARENTERAL) (UNSPECIFIED)
     Route: 065
  32. LITHIUM CARBONATE [Suspect]
     Active Substance: LITHIUM CARBONATE
     Indication: Complex regional pain syndrome
     Dosage: UNK,DOSAGE FORM NOT SPECIFIED
     Route: 065
  33. LITHIUM CARBONATE [Suspect]
     Active Substance: LITHIUM CARBONATE
     Dosage: UNK,DOSAGE FORM NOT SPECIFIED
     Route: 065
  34. METOPROLOL TARTRATE [Suspect]
     Active Substance: METOPROLOL TARTRATE
     Indication: Complex regional pain syndrome
     Dosage: UNK,(DOSAGE FORM:NOT SPECIFIED)
     Route: 065
  35. METOPROLOL TARTRATE [Suspect]
     Active Substance: METOPROLOL TARTRATE
     Dosage: UNK
     Route: 065
  36. MEXILETINE [Suspect]
     Active Substance: MEXILETINE
     Indication: Complex regional pain syndrome
     Dosage: UNK
     Route: 065
  37. MEXILETINE [Suspect]
     Active Substance: MEXILETINE
     Dosage: UNK
     Route: 065
  38. MYCOPHENOLATE MOFETIL [Suspect]
     Active Substance: MYCOPHENOLATE MOFETIL
     Indication: Complex regional pain syndrome
     Dosage: UNK,DOSAGE FORM NOT SPECIFIED
     Route: 065
  39. MYCOPHENOLATE MOFETIL [Suspect]
     Active Substance: MYCOPHENOLATE MOFETIL
     Dosage: UNK,DOSAGE FORM NOT SPECIFIED
     Route: 065
  40. ACETYLCYSTEINE [Suspect]
     Active Substance: ACETYLCYSTEINE
     Indication: Complex regional pain syndrome
     Dosage: UNK,DOSAGE FORM NOT SPECIFIED
     Route: 065
  41. ACETYLCYSTEINE [Suspect]
     Active Substance: ACETYLCYSTEINE
     Dosage: UNK
     Route: 065
  42. NALTREXONE HYDROCHLORIDE [Suspect]
     Active Substance: NALTREXONE HYDROCHLORIDE
     Indication: Complex regional pain syndrome
     Dosage: 4.5 MILLIGRAM, 1 EVERY 1 DAYS
     Route: 065
  43. NALTREXONE HYDROCHLORIDE [Suspect]
     Active Substance: NALTREXONE HYDROCHLORIDE
     Dosage: 4.5 MILLIGRAM
     Route: 065
  44. PALMIDROL [Suspect]
     Active Substance: PALMIDROL
     Indication: Complex regional pain syndrome
     Dosage: UNK
     Route: 065
  45. PALMIDROL [Suspect]
     Active Substance: PALMIDROL
     Dosage: UNK
     Route: 065
  46. PENTOXIFYLLINE [Suspect]
     Active Substance: PENTOXIFYLLINE
     Indication: Complex regional pain syndrome
     Dosage: UNK,(DOSAGE FORM:NOT SPECIFIED)
     Route: 065
  47. PENTOXIFYLLINE [Suspect]
     Active Substance: PENTOXIFYLLINE
     Dosage: UNK,(DOSAGE FORM:NOT SPECIFIED)
     Route: 065
  48. PREDNISONE [Suspect]
     Active Substance: PREDNISONE
     Indication: Complex regional pain syndrome
     Dosage: 85.0 MILLIGRAM, 1 EVERY 1 DAYSDOSAGE FORM NOT SPECIFIED
     Route: 065
  49. PREDNISONE [Suspect]
     Active Substance: PREDNISONE
     Dosage: 95.0 MILLIGRAM, 1 EVERY 1 DAY,DOSAGE FORM NOT SPECIFIED
     Route: 065
  50. PREDNISONE [Suspect]
     Active Substance: PREDNISONE
     Dosage: 5.0 MILLIGRAM, 1 EVERY 1 DAYS
     Route: 065
  51. PREDNISONE [Suspect]
     Active Substance: PREDNISONE
     Dosage: 1 EVERY 24 HOURS
     Route: 065
  52. PREDNISONE [Suspect]
     Active Substance: PREDNISONE
     Dosage: 1 EVERY 24 HOURS
     Route: 065
  53. PREDNISONE [Suspect]
     Active Substance: PREDNISONE
     Dosage: 13.0 MILLIGRAM, 1 EVERY 1 DAYS
     Route: 065
  54. PREDNISONE [Suspect]
     Active Substance: PREDNISONE
     Dosage: UNK, 1 EVERY 24 HOURS(Q24H),DOSAGE FORM NOT SPECIFIED
     Route: 065
  55. PREDNISONE [Suspect]
     Active Substance: PREDNISONE
     Dosage: UNK,DOSAGE FORM NOT SPECIFIED, 1 EVERY 1 DAYS
     Route: 065
  56. PREDNISONE [Suspect]
     Active Substance: PREDNISONE
     Dosage: UNK,DOSAGE FORM NOT SPECIFIED, 1 EVERY 1 DAYS
     Route: 065
  57. PREDNISONE [Suspect]
     Active Substance: PREDNISONE
     Dosage: UNK,DOSAGE FORM NOT SPECIFIED, 1 EVERY 1 DAYS
     Route: 065
  58. SPIRONOLACTONE [Suspect]
     Active Substance: SPIRONOLACTONE
     Indication: Complex regional pain syndrome
     Dosage: UNK
     Route: 065
  59. SPIRONOLACTONE [Suspect]
     Active Substance: SPIRONOLACTONE
     Dosage: UNK
     Route: 065
  60. RIBOFLAVIN [Suspect]
     Active Substance: RIBOFLAVIN
     Indication: Migraine prophylaxis
     Dosage: UNK, VITAMIN B2
     Route: 065
  61. RIBOFLAVIN [Suspect]
     Active Substance: RIBOFLAVIN
     Indication: Complex regional pain syndrome
     Dosage: UNK, VITAMIN B2,DOSAGE FORM NOT SPECIFIED
     Route: 065
  62. ASCORBIC ACID [Suspect]
     Active Substance: ASCORBIC ACID
     Indication: Complex regional pain syndrome
     Dosage: 1000 MILLIGRAM
     Route: 065
  63. ASCORBIC ACID [Suspect]
     Active Substance: ASCORBIC ACID
     Dosage: 100 MILLIGRAM,(DOSAGE FORM:NOT SPECIFIED)
     Route: 065
  64. CALCITONIN [Suspect]
     Active Substance: CALCITONIN
     Indication: Complex regional pain syndrome
     Dosage: UNK,DOSAGE FORM NOT SPECIFIED
     Route: 065
  65. CALCITONIN [Suspect]
     Active Substance: CALCITONIN
     Dosage: UNK,DOSAGE FORM NOT SPECIFIED
     Route: 065
  66. MAGNESIUM GLUCONATE [Suspect]
     Active Substance: MAGNESIUM GLUCONATE
     Indication: Migraine prophylaxis
     Dosage: UNK
     Route: 065
  67. MAGNESIUM GLUCONATE [Suspect]
     Active Substance: MAGNESIUM GLUCONATE
     Indication: Complex regional pain syndrome
     Dosage: UNK
     Route: 065
  68. MAGNESIUM GLUCONATE [Suspect]
     Active Substance: MAGNESIUM GLUCONATE
     Dosage: UNK
     Route: 065
  69. MEMANTINE HYDROCHLORIDE [Suspect]
     Active Substance: MEMANTINE HYDROCHLORIDE
     Indication: Complex regional pain syndrome
     Dosage: UNK
     Route: 065
  70. VITAMIN B2 [Suspect]
     Active Substance: RIBOFLAVIN
     Indication: Migraine prophylaxis
     Dosage: UNK, ANIMO VITAMIN B2
     Route: 065
  71. VITAMIN B2 [Suspect]
     Active Substance: RIBOFLAVIN
     Indication: Complex regional pain syndrome
     Dosage: UNK,(DOSAGE FORM:NOT SPECIFIED)
     Route: 065
  72. VITAMIN B2 [Suspect]
     Active Substance: RIBOFLAVIN
     Dosage: UNK
     Route: 065
  73. VITAMIN B2 [Suspect]
     Active Substance: RIBOFLAVIN
     Dosage: UNK,(DOSAGE FORM:NOT SPECIFIED)
     Route: 065
  74. PREGABALIN [Suspect]
     Active Substance: PREGABALIN
     Indication: Complex regional pain syndrome
     Dosage: UNK
     Route: 065
  75. PREGABALIN [Suspect]
     Active Substance: PREGABALIN
     Dosage: UNK
     Route: 065
  76. ACETYLCYSTEINE [Suspect]
     Active Substance: ACETYLCYSTEINE
     Indication: Complex regional pain syndrome
     Dosage: DOSAGE FORM: SOLUTION INHALATION
     Route: 065
  77. EZETIMIBE [Concomitant]
     Active Substance: EZETIMIBE
     Indication: Hyperlipidaemia
     Dosage: UNK
     Route: 065
  78. EZETIMIBE [Concomitant]
     Active Substance: EZETIMIBE
     Dosage: UNK
     Route: 065
  79. TRAZODONE HYDROCHLORIDE [Concomitant]
     Active Substance: TRAZODONE HYDROCHLORIDE
     Indication: Insomnia
     Dosage: UNK
     Route: 065
  80. TRAZODONE HYDROCHLORIDE [Concomitant]
     Active Substance: TRAZODONE HYDROCHLORIDE
     Indication: Hyperlipidaemia
     Dosage: UNK
     Route: 065
  81. ANAKINRA [Concomitant]
     Active Substance: ANAKINRA
     Indication: Product used for unknown indication
     Dosage: 100 MILLIGRAM
     Route: 058
  82. CALCITONIN [Concomitant]
     Active Substance: CALCITONIN
     Indication: Complex regional pain syndrome
     Dosage: UNK,(DOSAGE FORM:NOT SPECIFIED)
     Route: 065

REACTIONS (21)
  - Body tinea [Recovered/Resolved]
  - Bone density decreased [Recovered/Resolved]
  - Cataract [Recovered/Resolved]
  - Cellulitis [Recovered/Resolved]
  - Contusion [Recovered/Resolved]
  - Drug ineffective [Recovered/Resolved]
  - Fatigue [Recovered/Resolved]
  - Glucose tolerance impaired [Recovered/Resolved]
  - Herpes zoster [Recovered/Resolved]
  - Hyperlipidaemia [Recovered/Resolved]
  - Hypertension [Recovered/Resolved]
  - Impaired quality of life [Recovered/Resolved]
  - Impaired work ability [Recovered/Resolved]
  - Infection susceptibility increased [Recovered/Resolved]
  - Inhibitory drug interaction [Recovered/Resolved]
  - Insomnia [Recovered/Resolved]
  - Oral herpes [Recovered/Resolved]
  - Poor quality sleep [Recovered/Resolved]
  - Purpura [Recovered/Resolved]
  - Skin disorder [Recovered/Resolved]
  - Weight increased [Recovered/Resolved]
